FAERS Safety Report 4414624-9 (Version None)
Quarter: 2004Q3

REPORT INFORMATION
  Report Type: 
  Country: None (occurrence: None)
  Receive Date: 20040729
  Receipt Date: 20040716
  Transmission Date: 20050211
  Serious: Yes (Hospitalization, Other)
  Sender: FDA-Public Use
  Company Number: 2004043314

PATIENT
  Age: 60 Year
  Sex: Male

DRUGS (1)
  1. VIAGRA [Suspect]
     Indication: ILL-DEFINED DISORDER
     Dosage: (100 MG), INTRACAVERNOUS
     Route: 017

REACTIONS (7)
  - INTENTIONAL MISUSE [None]
  - MEDICATION ERROR [None]
  - PENILE ABSCESS [None]
  - PENILE SWELLING [None]
  - PRIAPISM [None]
  - STAPHYLOCOCCAL ABSCESS [None]
  - WHITE BLOOD CELL COUNT INCREASED [None]
